FAERS Safety Report 11282571 (Version 1)
Quarter: 2015Q3

REPORT INFORMATION
  Report Type: Spontaneous
  Country: US (occurrence: None)
  Receive Date: 20150716
  Receipt Date: 20150716
  Transmission Date: 20151125
  Serious: Yes (Hospitalization)
  Sender: FDA-Public Use
  Company Number: None

PATIENT
  Age: 64 Year
  Sex: Male
  Weight: 76.8 kg

DRUGS (1)
  1. FENTANYL TRANSDERMAL SYSTEM [Suspect]
     Active Substance: FENTANYL

REACTIONS (8)
  - Muscle spasms [None]
  - Malaise [None]
  - Drug withdrawal syndrome [None]
  - Arthralgia [None]
  - Device defective [None]
  - Pain [None]
  - Product quality issue [None]
  - Hyperhidrosis [None]

NARRATIVE: CASE EVENT DATE: 20150625
